FAERS Safety Report 4949478-5 (Version None)
Quarter: 2006Q1

REPORT INFORMATION
  Report Type: 
  Country: None (occurrence: None)
  Receive Date: 20060315
  Receipt Date: 20060222
  Transmission Date: 20060701
  Serious: Yes (Other)
  Sender: FDA-Public Use
  Company Number: US200602001039

PATIENT
  Age: 51 Year
  Sex: Female

DRUGS (5)
  1. STRATTERA [Suspect]
     Indication: MEMORY IMPAIRMENT
     Dosage: SEE IMAGE
     Dates: start: 20050801
  2. STRATTERA [Suspect]
     Indication: MEMORY IMPAIRMENT
     Dosage: SEE IMAGE
     Dates: start: 20051001
  3. FLUOXETINE /N/A/ (FLUOXETINE) [Concomitant]
  4. LITHIUM (LITHIUM) [Concomitant]
  5. VALIUM /NET/ (DIAZEPAM) [Concomitant]

REACTIONS (9)
  - DIZZINESS [None]
  - FEELING ABNORMAL [None]
  - FEELING HOT [None]
  - HEADACHE [None]
  - MYOCARDIAL INFARCTION [None]
  - PARAESTHESIA [None]
  - THERAPEUTIC RESPONSE UNEXPECTED [None]
  - TREATMENT NONCOMPLIANCE [None]
  - UNEVALUABLE EVENT [None]
